FAERS Safety Report 18851628 (Version 2)
Quarter: 2021Q1

REPORT INFORMATION
  Report Type: Spontaneous
  Country: JP (occurrence: JP)
  Receive Date: 20210205
  Receipt Date: 20210222
  Transmission Date: 20210420
  Serious: Yes (Other)
  Sender: FDA-Public Use
  Company Number: JP-SUN PHARMACEUTICAL INDUSTRIES LTD-2021R1-277368

PATIENT
  Age: 36 Year
  Sex: Male

DRUGS (1)
  1. TESTOSTERONE. [Suspect]
     Active Substance: TESTOSTERONE
     Indication: LATE ONSET HYPOGONADISM SYNDROME
     Dosage: UNK
     Route: 065

REACTIONS (2)
  - Infertility male [Unknown]
  - Oligospermia [Unknown]
